FAERS Safety Report 9095071 (Version 1)
Quarter: 2013Q1

REPORT INFORMATION
  Report Type: Spontaneous
  Country: US (occurrence: None)
  Receive Date: 20130123
  Receipt Date: 20130123
  Transmission Date: 20140127
  Serious: Yes (Hospitalization)
  Sender: FDA-Public Use
  Company Number: KAD201301-000058

PATIENT
  Age: 52 Year
  Sex: Male
  Weight: 53.07 kg

DRUGS (3)
  1. RIBAPAK [Suspect]
     Indication: HEPATITIS C
     Dosage: 1000 MG, 600 MG IN THE MORNING AND 400 MG IN THE EVENING (STRENGTH: 600/400), ORAL
     Dates: start: 201205, end: 20121228
  2. PEGASYS [Suspect]
     Indication: HEPATITIS C
     Dosage: 180 MCG/0.5 ML, WEEKLY (EVERY WEDNESDAY), SUBCUTANEOUS
     Dates: start: 201205, end: 20121226
  3. NIFEDIPINE [Concomitant]

REACTIONS (4)
  - Weight decreased [None]
  - Dizziness [None]
  - Gait disturbance [None]
  - Vertigo [None]
